FAERS Safety Report 25506799 (Version 1)
Quarter: 2025Q3

REPORT INFORMATION
  Report Type: Spontaneous
  Country: US (occurrence: US)
  Receive Date: 20250702
  Receipt Date: 20250702
  Transmission Date: 20251020
  Serious: No
  Sender: RADIUS PHARM
  Company Number: US-RADIUS HEALTH INC.-2025US000131

PATIENT
  Sex: Female

DRUGS (1)
  1. TYMLOS [Suspect]
     Active Substance: ABALOPARATIDE
     Indication: Product used for unknown indication
     Dosage: 80 MICROGRAM, QD
     Route: 058
     Dates: start: 20241119

REACTIONS (9)
  - Cardiac disorder [Unknown]
  - Heart valve incompetence [Unknown]
  - Osteoarthritis [Unknown]
  - Osteoporosis [Unknown]
  - Injection site discomfort [Unknown]
  - Blood pressure increased [Unknown]
  - Palpitations [Not Recovered/Not Resolved]
  - Product administered at inappropriate site [Unknown]
  - Product use complaint [Unknown]
